FAERS Safety Report 10641132 (Version 1)
Quarter: 2014Q4

REPORT INFORMATION
  Report Type: Spontaneous
  Country: US (occurrence: None)
  Receive Date: 20141208
  Receipt Date: 20141208
  Transmission Date: 20150529
  Serious: Yes (Other)
  Sender: FDA-Public Use
  Company Number: None

PATIENT
  Age: 75 Year
  Sex: Male
  Weight: 59.1 kg

DRUGS (9)
  1. BUPROPION XL [Concomitant]
     Active Substance: BUPROPION
  2. FUROSEMIDE. [Concomitant]
     Active Substance: FUROSEMIDE
  3. QVAR [Concomitant]
     Active Substance: BECLOMETHASONE DIPROPIONATE
  4. K-TAB [Concomitant]
     Active Substance: POTASSIUM CHLORIDE
  5. PROAIR HFA [Concomitant]
     Active Substance: ALBUTEROL SULFATE
  6. PRADAXA [Suspect]
     Active Substance: DABIGATRAN ETEXILATE MESYLATE
     Indication: ATRIAL FLUTTER
     Route: 048
     Dates: start: 20140928, end: 20141018
  7. DILTIAZEM XR [Concomitant]
     Active Substance: DILTIAZEM
  8. TRIAMCINOLONE ACETONIDE. [Concomitant]
     Active Substance: TRIAMCINOLONE ACETONIDE
  9. SPIRIVA [Concomitant]
     Active Substance: TIOTROPIUM BROMIDE MONOHYDRATE

REACTIONS (6)
  - Choking sensation [None]
  - Oesophageal ulcer [None]
  - Dysphagia [None]
  - Helicobacter infection [None]
  - Odynophagia [None]
  - Burning sensation [None]

NARRATIVE: CASE EVENT DATE: 20140930
